FAERS Safety Report 19574382 (Version 1)
Quarter: 2021Q3

REPORT INFORMATION
  Report Type: Report from Study
  Country: US (occurrence: US)
  Receive Date: 20210719
  Receipt Date: 20210719
  Transmission Date: 20211014
  Serious: Yes (Other)
  Sender: FDA-Public Use
  Company Number: US-UCBSA-2021000787

PATIENT
  Sex: Male

DRUGS (4)
  1. TRULICITY [Concomitant]
     Active Substance: DULAGLUTIDE
     Indication: TYPE 1 DIABETES MELLITUS
     Dosage: UNK
  2. LANTUS [Concomitant]
     Active Substance: INSULIN GLARGINE
     Indication: TYPE 1 DIABETES MELLITUS
     Dosage: UNK
  3. CERTOLIZUMAB PEGOL [Suspect]
     Active Substance: CERTOLIZUMAB PEGOL
     Indication: PSORIATIC ARTHROPATHY
     Dosage: 400 MILLIGRAM, MONTHLY (QM)
     Dates: start: 20201123
  4. HUMALOG [Concomitant]
     Active Substance: INSULIN LISPRO
     Indication: TYPE 1 DIABETES MELLITUS
     Dosage: UNK

REACTIONS (9)
  - Therapy interrupted [Unknown]
  - Gout [Recovered/Resolved]
  - Decreased appetite [Not Recovered/Not Resolved]
  - Product administered at inappropriate site [Unknown]
  - Weight decreased [Not Recovered/Not Resolved]
  - Psoriasis [Not Recovered/Not Resolved]
  - Dysphonia [Not Recovered/Not Resolved]
  - Insurance issue [Unknown]
  - Drug ineffective [Unknown]

NARRATIVE: CASE EVENT DATE: 2020
